FAERS Safety Report 18890846 (Version 3)
Quarter: 2025Q4

REPORT INFORMATION
  Report Type: Spontaneous
  Country: US (occurrence: US)
  Receive Date: 20210215
  Receipt Date: 20251010
  Transmission Date: 20260117
  Serious: No
  Sender: SANOFI AVENTIS
  Company Number: US-SA-SAC20210210001292

PATIENT
  Sex: Female

DRUGS (3)
  1. DUPIXENT [Suspect]
     Active Substance: DUPILUMAB
     Indication: Dermatitis
     Dosage: 300 MG
     Route: 058
     Dates: start: 202002
  2. DUPIXENT [Suspect]
     Active Substance: DUPILUMAB
     Indication: Dermatitis allergic
     Dosage: 300 MG, Q10D
     Route: 058
  3. DUPIXENT [Suspect]
     Active Substance: DUPILUMAB
     Indication: Neurodermatitis
     Dosage: 300 MG, QOW
     Route: 058

REACTIONS (7)
  - Dermatitis [Unknown]
  - Stress [Unknown]
  - Condition aggravated [Unknown]
  - Rebound effect [Unknown]
  - Inappropriate schedule of product administration [Unknown]
  - Inappropriate schedule of product administration [Unknown]
  - Product use in unapproved indication [Unknown]
